FAERS Safety Report 9183520 (Version 1)
Quarter: 2012Q4

REPORT INFORMATION
  Report Type: 
  Country: ES (occurrence: ES)
  Receive Date: 20121030
  Receipt Date: 20121030
  Transmission Date: 20130627
  Serious: Yes (Other)
  Sender: FDA-Public Use
  Company Number: ES-JNJFOC-20121010786

PATIENT

DRUGS (6)
  1. RISPERDAL CONSTA [Suspect]
     Indication: SCHIZOAFFECTIVE DISORDER
     Route: 030
  2. RISPERDAL CONSTA [Suspect]
     Indication: SCHIZOPHRENIA
     Route: 030
  3. XEPLION [Suspect]
     Indication: SCHIZOAFFECTIVE DISORDER
     Route: 030
  4. XEPLION [Suspect]
     Indication: SCHIZOPHRENIA
     Route: 030
  5. NEUROLEPTIC DRUGS NOS [Suspect]
     Indication: SCHIZOAFFECTIVE DISORDER
     Route: 048
  6. NEUROLEPTIC DRUGS NOS [Suspect]
     Indication: SCHIZOPHRENIA
     Route: 048

REACTIONS (3)
  - Akathisia [Unknown]
  - Adverse reaction [Unknown]
  - Off label use [Unknown]
